FAERS Safety Report 5323322-9 (Version None)
Quarter: 2007Q2

REPORT INFORMATION
  Report Type: 
  Country: None (occurrence: None)
  Receive Date: 20070223
  Receipt Date: 20060106
  Transmission Date: 20071010
  Serious: Yes (Hospitalization)
  Sender: FDA-Public Use
  Company Number: WAES 0505USA01274

PATIENT
  Age: 51 Year
  Sex: Male

DRUGS (8)
  1. ZOCOR [Suspect]
     Indication: HYPERLIPIDAEMIA
     Dosage: 40 MG/DAILY/PO
     Route: 048
     Dates: start: 20020501, end: 20030621
  2. ZOCOR [Suspect]
     Indication: HYPERCHOLESTEROLAEMIA
     Dosage: 80 MG/DAILY/PO
     Route: 048
     Dates: start: 20030622, end: 20030722
  3. ZOCOR [Suspect]
     Indication: HYPERLIPIDAEMIA
     Dosage: 80 MG/DAILY/PO
     Route: 048
     Dates: start: 20030622, end: 20030722
  4. LOPID [Suspect]
     Indication: HYPERLIPIDAEMIA
     Dosage: 600 MG/BID
     Dates: end: 20010722
  5. HYDRODIURIL [Concomitant]
  6. LOTENSIN [Concomitant]
  7. ALLOPURINOL [Concomitant]
  8. METOPROLOL SUCCINATE [Concomitant]

REACTIONS (3)
  - DIARRHOEA [None]
  - RENAL FAILURE ACUTE [None]
  - RHABDOMYOLYSIS [None]
